FAERS Safety Report 5250776-9 (Version None)
Quarter: 2007Q1

REPORT INFORMATION
  Report Type: 
  Country: None (occurrence: None)
  Receive Date: 20070228
  Receipt Date: 20070221
  Transmission Date: 20070707
  Serious: Yes (Other)
  Sender: FDA-Public Use
  Company Number: US-ROCHE-479695

PATIENT
  Age: 66 Year
  Sex: Female

DRUGS (2)
  1. PEGASYS [Suspect]
     Dosage: PATIENT CURRENTLY AT WEEK 13 OF THERAPY AT THE TIME OF THE REPORT.
     Route: 065
     Dates: start: 20061123
  2. COPEGUS [Suspect]
     Dosage: PATIENT CURRENTLY AT WEEK 13 OF THERAPY AT THE TIME OF THE REPORT.
     Route: 065
     Dates: start: 20061123

REACTIONS (10)
  - ANAEMIA [None]
  - ANOREXIA [None]
  - ASTHENIA [None]
  - BLOOD GLUCOSE INCREASED [None]
  - BRONCHITIS [None]
  - COUGH [None]
  - DEHYDRATION [None]
  - DIARRHOEA [None]
  - FATIGUE [None]
  - NIGHT SWEATS [None]
